FAERS Safety Report 11976775 (Version 1)
Quarter: 2016Q1

REPORT INFORMATION
  Report Type: Spontaneous
  Country: CA (occurrence: CA)
  Receive Date: 20160129
  Receipt Date: 20160129
  Transmission Date: 20160526
  Serious: Yes (Other)
  Sender: FDA-Public Use
  Company Number: CA-WARNER CHILCOTT, LLC-1047078

PATIENT
  Age: 25 Year
  Sex: Female
  Weight: 58.14 kg

DRUGS (4)
  1. REMICADE [Suspect]
     Active Substance: INFLIXIMAB
     Route: 042
  2. SYNTHROID [Suspect]
     Active Substance: LEVOTHYROXINE SODIUM
  3. ASACOL HD [Suspect]
     Active Substance: MESALAMINE
  4. IRON [Concomitant]
     Active Substance: IRON

REACTIONS (1)
  - Amniotic cavity infection [Not Recovered/Not Resolved]
